FAERS Safety Report 7064830-2 (Version None)
Quarter: 2010Q4

REPORT INFORMATION
  Report Type: 
  Country: None (occurrence: None)
  Receive Date: 20101027
  Receipt Date: 20101014
  Transmission Date: 20110411
  Serious: Yes (Other)
  Sender: FDA-Public Use
  Company Number: US-SANOFI-AVENTIS-2010SA063698

PATIENT
  Sex: Male

DRUGS (2)
  1. JEVTANA KIT [Suspect]
     Route: 041
  2. JEVTANA KIT [Suspect]
     Route: 041

REACTIONS (3)
  - ABDOMINAL PAIN [None]
  - CONSTIPATION [None]
  - ILEUS [None]
